FAERS Safety Report 10045400 (Version 1)
Quarter: 2014Q1

REPORT INFORMATION
  Report Type: Spontaneous
  Country: US (occurrence: US)
  Receive Date: 20140328
  Receipt Date: 20140328
  Transmission Date: 20141002
  Serious: Yes (Other)
  Sender: FDA-Public Use
  Company Number: US-BRISTOL-MYERS SQUIBB COMPANY-20547337

PATIENT
  Age: 49 Year
  Sex: Male
  Weight: 96.1 kg

DRUGS (7)
  1. ERBITUX [Suspect]
     Dates: start: 20140120
  2. VECTIBIX [Suspect]
     Indication: COLORECTAL CANCER METASTATIC
  3. OXALIPLATIN [Suspect]
  4. XELODA [Suspect]
  5. AVASTIN [Suspect]
  6. FOLINIC ACID [Suspect]
  7. FLUOROURACIL [Suspect]

REACTIONS (9)
  - Rash [Recovering/Resolving]
  - Urticaria [Unknown]
  - Pain in extremity [Unknown]
  - Chills [Unknown]
  - Nasal oedema [Recovering/Resolving]
  - Erythema [Recovering/Resolving]
  - Pain of skin [Recovering/Resolving]
  - Neuropathy peripheral [Unknown]
  - Activities of daily living impaired [Recovering/Resolving]
